FAERS Safety Report 4930989-3 (Version None)
Quarter: 2006Q1

REPORT INFORMATION
  Report Type: 
  Country: None (occurrence: None)
  Receive Date: 20060227
  Receipt Date: 20060214
  Transmission Date: 20060701
  Serious: Yes (Life-Threatening)
  Sender: FDA-Public Use
  Company Number: 2006022084

PATIENT
  Age: 57 Year
  Sex: Female
  Weight: 53 kg

DRUGS (5)
  1. SU-011,248 [Suspect]
     Indication: RENAL CELL CARCINOMA STAGE UNSPECIFIED
     Dosage: 37.5 MG (37.5 MG, 1 IN 1 D), ORAL
     Route: 048
     Dates: start: 20060111, end: 20060204
  2. DURAGESIC [Concomitant]
  3. BENALAPRIL (ENALAPRIL) [Concomitant]
  4. AMLOPIN (AMLODIPINE BESILATE) [Concomitant]
  5. AREDIA [Concomitant]

REACTIONS (1)
  - TONGUE OEDEMA [None]
